APPROVED DRUG PRODUCT: PRAZIQUANTEL
Active Ingredient: PRAZIQUANTEL
Strength: 600MG
Dosage Form/Route: TABLET;ORAL
Application: A208820 | Product #001
Applicant: PH HEALTH LTD
Approved: Nov 27, 2017 | RLD: No | RS: Yes | Type: RX